FAERS Safety Report 7012933-0 (Version None)
Quarter: 2010Q3

REPORT INFORMATION
  Report Type: 
  Country: None (occurrence: None)
  Receive Date: 20100924
  Receipt Date: 20100913
  Transmission Date: 20110219
  Serious: Yes (Other)
  Sender: FDA-Public Use
  Company Number: DE-PFIZER INC-2010116016

PATIENT

DRUGS (1)
  1. VFEND [Suspect]

REACTIONS (2)
  - CEREBRAL DISORDER [None]
  - FATIGUE [None]
